FAERS Safety Report 4987521-8 (Version None)
Quarter: 2006Q2

REPORT INFORMATION
  Report Type: 
  Country: None (occurrence: None)
  Receive Date: 20060427
  Receipt Date: 20060427
  Transmission Date: 20061013
  Serious: No
  Sender: FDA-Public Use
  Company Number: None

PATIENT
  Sex: Male
  Weight: 97.0698 kg

DRUGS (9)
  1. ATENOLOL [Suspect]
     Indication: HYPERTENSION
     Dosage: 50 MG BID PO
     Route: 048
     Dates: start: 20051101, end: 20060201
  2. ATENOLOL [Suspect]
     Indication: HYPERTENSION
     Dosage: 50 MG BID PO
     Route: 048
     Dates: start: 20051101, end: 20060201
  3. NORVASC [Concomitant]
  4. XANAX [Concomitant]
  5. NEXIUM [Concomitant]
  6. VOLTAREN [Concomitant]
  7. LASIX [Concomitant]
  8. POTASSIUM CHLORIDE [Concomitant]
  9. CLONIDINE [Concomitant]

REACTIONS (4)
  - ABDOMINAL PAIN LOWER [None]
  - DRUG INEFFECTIVE [None]
  - FLATULENCE [None]
  - PHARMACEUTICAL PRODUCT COMPLAINT [None]
